FAERS Safety Report 17974457 (Version 1)
Quarter: 2020Q3

REPORT INFORMATION
  Report Type: Spontaneous
  Country: US (occurrence: US)
  Receive Date: 20200702
  Receipt Date: 20200702
  Transmission Date: 20201103
  Serious: No
  Sender: FDA-Public Use
  Company Number: US-PFIZER INC-2020252789

PATIENT
  Age: 70 Year
  Sex: Female
  Weight: 78.91 kg

DRUGS (9)
  1. SUCRALFATE. [Suspect]
     Active Substance: SUCRALFATE
     Dosage: UNK
  2. ONDANSETRON HCL [Suspect]
     Active Substance: ONDANSETRON HYDROCHLORIDE
     Dosage: UNK
  3. VITAMIN D3 [Suspect]
     Active Substance: CHOLECALCIFEROL
     Dosage: UNK
  4. OMEPRAZOLE. [Suspect]
     Active Substance: OMEPRAZOLE
     Dosage: UNK
  5. LENVIMA [Suspect]
     Active Substance: LENVATINIB
     Indication: HEPATIC CANCER
     Dosage: 12 MG, DAILY
     Route: 048
     Dates: start: 20200128
  6. BIOTIN [Suspect]
     Active Substance: BIOTIN
     Dosage: UNK
  7. CALCIUM [Suspect]
     Active Substance: CALCIUM
     Dosage: UNK
  8. AMPICILLIN TRIHYDRATE. [Suspect]
     Active Substance: AMPICILLIN TRIHYDRATE
     Dosage: UNK
  9. CLINDAMYCIN HCL [Suspect]
     Active Substance: CLINDAMYCIN HYDROCHLORIDE
     Dosage: UNK

REACTIONS (6)
  - Localised infection [Recovering/Resolving]
  - Stomatitis [Recovering/Resolving]
  - Tongue disorder [Recovering/Resolving]
  - Oral pain [Recovering/Resolving]
  - Furuncle [Recovering/Resolving]
  - Dry mouth [Recovering/Resolving]
